FAERS Safety Report 4633235-3 (Version None)
Quarter: 2005Q2

REPORT INFORMATION
  Report Type: 
  Country: None (occurrence: None)
  Receive Date: 20050412
  Receipt Date: 20050412
  Transmission Date: 20051028
  Serious: No
  Sender: FDA-Public Use
  Company Number: None

PATIENT
  Sex: Female
  Weight: 82.1011 kg

DRUGS (1)
  1. ORTHO-NOVUM 1/35-28 [Suspect]
     Indication: CONTRACEPTION
     Dosage: ONE Q DAY PO
     Route: 048

REACTIONS (3)
  - ABDOMINAL DISCOMFORT [None]
  - MENSTRUATION IRREGULAR [None]
  - NAUSEA [None]
